FAERS Safety Report 26056392 (Version 1)
Quarter: 2025Q4

REPORT INFORMATION
  Report Type: Spontaneous
  Country: RU (occurrence: RU)
  Receive Date: 20251118
  Receipt Date: 20251118
  Transmission Date: 20260117
  Serious: Yes (Other)
  Sender: ROCHE
  Company Number: RU-ROCHE-10000432860

PATIENT
  Sex: Male

DRUGS (4)
  1. ATEZOLIZUMAB [Suspect]
     Active Substance: ATEZOLIZUMAB
     Indication: Adenocarcinoma
     Route: 065
     Dates: start: 20220811, end: 20221013
  2. BEVACIZUMAB [Suspect]
     Active Substance: BEVACIZUMAB
     Indication: Adenocarcinoma
     Dosage: 15 MG/KG - 1,110 MG ON DAY 1; IN A 21-DAY CYCLE
     Route: 065
     Dates: start: 20220811, end: 20221013
  3. PACLITAXEL [Suspect]
     Active Substance: PACLITAXEL
     Indication: Adenocarcinoma
     Dosage: 200 MG/M2 - 380 MG ON DAY 1
     Route: 065
     Dates: start: 20220811, end: 20221013
  4. CARBOPLATIN [Suspect]
     Active Substance: CARBOPLATIN
     Indication: Adenocarcinoma
     Dosage: AUC 6 ON DAY 1 - 642 MG
     Route: 065
     Dates: start: 20220811, end: 20221013

REACTIONS (2)
  - Metastases to soft tissue [Unknown]
  - Metastases to bone [Unknown]
